FAERS Safety Report 18937179 (Version 1)
Quarter: 2021Q1

REPORT INFORMATION
  Report Type: Spontaneous
  Country: US (occurrence: US)
  Receive Date: 20210224
  Receipt Date: 20210224
  Transmission Date: 20210420
  Serious: Yes (Other)
  Sender: FDA-Public Use
  Company Number: US-CHIESI USA, INC.-US-2021CHI000046

PATIENT

DRUGS (2)
  1. CIPROFLOXACIN. [Suspect]
     Active Substance: CIPROFLOXACIN
     Indication: BRONCHIECTASIS
     Dosage: UNK
     Dates: start: 202102
  2. BETHKIS [Suspect]
     Active Substance: TOBRAMYCIN
     Indication: BRONCHIECTASIS
     Dosage: 1 DF, BID
     Route: 055
     Dates: start: 202008

REACTIONS (4)
  - Condition aggravated [Recovering/Resolving]
  - Product use in unapproved indication [Recovering/Resolving]
  - Arthralgia [Unknown]
  - Bronchiectasis [Recovering/Resolving]

NARRATIVE: CASE EVENT DATE: 202008
